FAERS Safety Report 6124441-X (Version None)
Quarter: 2009Q1

REPORT INFORMATION
  Report Type: 
  Country: None (occurrence: None)
  Receive Date: 20090319
  Receipt Date: 20090319
  Transmission Date: 20090719
  Serious: Yes (Other)
  Sender: FDA-Public Use
  Company Number: A0773913A

PATIENT
  Age: 59 Year
  Sex: Female

DRUGS (1)
  1. COMMIT NICOTINE POLACRILEX CAPPUCCINO LOZENGE, 4MG [Suspect]
     Indication: SMOKING CESSATION THERAPY
     Route: 002
     Dates: start: 20090101

REACTIONS (4)
  - APHTHOUS STOMATITIS [None]
  - GLOSSODYNIA [None]
  - TONGUE BLISTERING [None]
  - TONGUE PARALYSIS [None]
